FAERS Safety Report 13494845 (Version 2)
Quarter: 2017Q2

REPORT INFORMATION
  Report Type: Spontaneous
  Country: US (occurrence: US)
  Receive Date: 20170428
  Receipt Date: 20170609
  Transmission Date: 20170830
  Serious: Yes (Other)
  Sender: FDA-Public Use
  Company Number: US-PFIZER INC-2017181853

PATIENT
  Sex: Female

DRUGS (2)
  1. XANAX [Suspect]
     Active Substance: ALPRAZOLAM
     Indication: ANXIETY
     Dosage: 0.25 MG, UNK
  2. XANAX [Suspect]
     Active Substance: ALPRAZOLAM
     Indication: SLEEP DISORDER

REACTIONS (4)
  - Paraesthesia [Unknown]
  - Withdrawal syndrome [Unknown]
  - Tremor [Unknown]
  - Drug use disorder [Unknown]
